FAERS Safety Report 4423717-1 (Version None)
Quarter: 2004Q3

REPORT INFORMATION
  Report Type: 
  Country: None (occurrence: None)
  Receive Date: 20040805
  Receipt Date: 20040721
  Transmission Date: 20050211
  Serious: Yes (Hospitalization, Disabling)
  Sender: FDA-Public Use
  Company Number: 2004-0007248

PATIENT
  Age: 35 Year
  Sex: Male
  Weight: 50 kg

DRUGS (7)
  1. VIREAD [Suspect]
     Indication: HIV INFECTION
     Dosage: 300 MG, 1 IN 1 D, ORAL
     Route: 048
     Dates: start: 20020713, end: 20020912
  2. STAVUDINE [Concomitant]
  3. KALETRA [Concomitant]
  4. OMEPRAZOLE [Concomitant]
  5. BACTRIM [Concomitant]
  6. CHLORPHENIRAMINE TAB [Concomitant]
  7. METHADONE HCL [Concomitant]

REACTIONS (4)
  - NEPHRITIS INTERSTITIAL [None]
  - RENAL INTERSTITIAL FIBROSIS [None]
  - RENAL TUBULAR ATROPHY [None]
  - VOMITING [None]
